FAERS Safety Report 12530864 (Version 4)
Quarter: 2019Q1

REPORT INFORMATION
  Report Type: Spontaneous
  Country: CA (occurrence: CA)
  Receive Date: 20160706
  Receipt Date: 20190123
  Transmission Date: 20190417
  Serious: Yes (Other)
  Sender: FDA-Public Use
  Company Number: CA-AMGEN-CANSP2015081119

PATIENT
  Age: 53 Year
  Sex: Female

DRUGS (18)
  1. REMICADE [Suspect]
     Active Substance: INFLIXIMAB
     Indication: PRODUCT USED FOR UNKNOWN INDICATION
     Dosage: UNK
     Route: 042
  2. GOLD [Concomitant]
     Active Substance: GOLD
     Dosage: UNK
  3. HYDROXYCHLOROQUINE [Concomitant]
     Active Substance: HYDROXYCHLOROQUINE
     Dosage: UNK
     Route: 065
  4. METHOTREXATE. [Suspect]
     Active Substance: METHOTREXATE
     Dosage: UNK
     Route: 058
  5. HUMIRA [Suspect]
     Active Substance: ADALIMUMAB
     Indication: PRODUCT USED FOR UNKNOWN INDICATION
     Dosage: UNK
     Route: 058
  6. ARAVA [Suspect]
     Active Substance: LEFLUNOMIDE
     Indication: RHEUMATOID ARTHRITIS
     Dosage: 20 MG, QD
     Route: 065
     Dates: start: 200404, end: 200604
  7. METHOTREXATE. [Suspect]
     Active Substance: METHOTREXATE
     Dosage: 20 MG, QD
     Route: 065
  8. CIMZIA [Suspect]
     Active Substance: CERTOLIZUMAB PEGOL
     Indication: PRODUCT USED FOR UNKNOWN INDICATION
     Dosage: UNK
     Route: 058
  9. RITUXAN [Suspect]
     Active Substance: RITUXIMAB
     Indication: PRODUCT USED FOR UNKNOWN INDICATION
     Dosage: UNK
     Route: 042
  10. SULFASALAZINE. [Suspect]
     Active Substance: SULFASALAZINE
     Indication: RHEUMATOID ARTHRITIS
     Dosage: 2 G, QD
     Route: 048
     Dates: start: 2001, end: 2003
  11. METHOTREXATE. [Suspect]
     Active Substance: METHOTREXATE
     Dosage: UNK
     Route: 048
  12. SIMPONI [Suspect]
     Active Substance: GOLIMUMAB
     Indication: PRODUCT USED FOR UNKNOWN INDICATION
     Dosage: UNK
     Route: 058
  13. ENBREL [Suspect]
     Active Substance: ETANERCEPT
     Indication: RHEUMATOID ARTHRITIS
     Dosage: UNK
     Route: 058
  14. ORENCIA [Suspect]
     Active Substance: ABATACEPT
     Indication: PRODUCT USED FOR UNKNOWN INDICATION
     Dosage: UNK
     Route: 065
  15. PLAQUENIL [Concomitant]
     Active Substance: HYDROXYCHLOROQUINE SULFATE
     Dosage: UNK
  16. SULFASALAZINE. [Suspect]
     Active Substance: SULFASALAZINE
     Dosage: 2 G, QD
     Route: 048
     Dates: start: 2004, end: 2004
  17. METHOTREXATE. [Suspect]
     Active Substance: METHOTREXATE
     Indication: RHEUMATOID ARTHRITIS
     Dosage: 20 MG, QWK
     Route: 065
     Dates: start: 1997, end: 200707
  18. ACTEMRA [Suspect]
     Active Substance: TOCILIZUMAB
     Indication: PRODUCT USED FOR UNKNOWN INDICATION
     Dosage: UNK
     Route: 065

REACTIONS (14)
  - Ankle fracture [Unknown]
  - Decreased appetite [Unknown]
  - Nausea [Unknown]
  - Joint swelling [Unknown]
  - Drug ineffective [Unknown]
  - Headache [Unknown]
  - Rheumatoid arthritis [Unknown]
  - Stress [Unknown]
  - Malaise [Unknown]
  - Hypercholesterolaemia [Unknown]
  - Vomiting [Unknown]
  - Unevaluable event [Unknown]
  - Drug effect incomplete [Unknown]
  - Infection [Unknown]

NARRATIVE: CASE EVENT DATE: 20151013
